FAERS Safety Report 4775651-5 (Version None)
Quarter: 2005Q3

REPORT INFORMATION
  Report Type: 
  Country: None (occurrence: None)
  Receive Date: 20050914
  Receipt Date: 20050315
  Transmission Date: 20060218
  Serious: Yes (Death)
  Sender: FDA-Public Use
  Company Number: 163-20785-05030423

PATIENT
  Age: 67 Year
  Sex: Male
  Weight: 75.4 kg

DRUGS (1)
  1. THALOMID [Suspect]
     Indication: NON-SMALL CELL LUNG CANCER STAGE IV
     Dosage: 200 MG, DAILY, ORAL
     Route: 048
     Dates: start: 20050207, end: 20050303

REACTIONS (4)
  - DEATH [None]
  - DISEASE PROGRESSION [None]
  - DYSPNOEA [None]
  - PNEUMONIA [None]
